FAERS Safety Report 4586488-4 (Version None)
Quarter: 2005Q1

REPORT INFORMATION
  Report Type: 
  Country: None (occurrence: None)
  Receive Date: 20050217
  Receipt Date: 20050217
  Transmission Date: 20050727
  Serious: Yes (Other)
  Sender: FDA-Public Use
  Company Number: None

PATIENT
  Sex: Male
  Weight: 100.2449 kg

DRUGS (1)
  1. GABAPENTIN [Suspect]
     Indication: AUTONOMIC NEUROPATHY
     Dosage: 800 MG 2 PO Q AM  1 PO NOON   2 PO Q HS
     Route: 048

REACTIONS (2)
  - RASH [None]
  - THERAPEUTIC PRODUCT INEFFECTIVE [None]
